FAERS Safety Report 6679869-6 (Version None)
Quarter: 2010Q2

REPORT INFORMATION
  Report Type: 
  Country: None (occurrence: None)
  Receive Date: 20100409
  Receipt Date: 20100405
  Transmission Date: 20101027
  Serious: Yes (Disabling, Other)
  Sender: FDA-Public Use
  Company Number: OSCN-PR-0607L-0192

PATIENT
  Age: 60 Year
  Sex: Male

DRUGS (6)
  1. OMNISCAN [Suspect]
     Indication: DRUG USE FOR UNKNOWN INDICATION
     Dosage: 20 ML, SINGLE DOSE, IV
     Route: 042
  2. DARBEPOETIN ALFA [Concomitant]
  3. METOPROLOL TARTRATE [Concomitant]
  4. HYDROMORPHONE [Concomitant]
  5. WARFARIN SODIUM [Concomitant]
  6. PANTOPRAZOLE [Concomitant]

REACTIONS (9)
  - DIALYSIS [None]
  - GRAFT LOSS [None]
  - HEPATIC VEIN THROMBOSIS [None]
  - LIVER TRANSPLANT [None]
  - NEPHROGENIC SYSTEMIC FIBROSIS [None]
  - RENAL FAILURE [None]
  - RENAL FAILURE CHRONIC [None]
  - SURGICAL PROCEDURE REPEATED [None]
  - WHEELCHAIR USER [None]
